FAERS Safety Report 6038917-7 (Version None)
Quarter: 2009Q1

REPORT INFORMATION
  Report Type: 
  Country: None (occurrence: None)
  Receive Date: 20090114
  Receipt Date: 20090114
  Transmission Date: 20090719
  Serious: Yes (Disabling)
  Sender: FDA-Public Use
  Company Number: None

PATIENT
  Age: 63 Year
  Sex: Female
  Weight: 69.4003 kg

DRUGS (1)
  1. RECLAST [Suspect]
     Dosage: 5 MG YEARLY  1 INJECTION
     Dates: start: 20080901, end: 20080901

REACTIONS (1)
  - RHEUMATOID ARTHRITIS [None]
